FAERS Safety Report 7628364-6 (Version None)
Quarter: 2011Q4

REPORT INFORMATION
  Report Type: 
  Country: None (occurrence: None)
  Receive Date: 20110711
  Receipt Date: 20110623
  Transmission Date: 20120403
  Serious: Yes (Life-Threatening, Hospitalization)
  Sender: FDA-Public Use
  Company Number: 2011029020

PATIENT
  Age: 77 Year
  Sex: Female

DRUGS (10)
  1. PRIVIGEN [Suspect]
     Indication: POLYMYOSITIS
     Dosage: 70 G TOTAL, 20 G - 20 G - 30 G
     Route: 042
     Dates: start: 20110609
  2. PRIVIGEN [Suspect]
     Indication: POLYMYOSITIS
     Dosage: 70 G TOTAL, 20 G - 20 G - 30 G
     Route: 042
     Dates: start: 20110617, end: 20110619
  3. METHYLPREDNISOLONE 4MG TAB [Concomitant]
  4. ACETAMINOPHEN [Concomitant]
  5. ZOPICLONE (ZOPICLONE) [Concomitant]
  6. ATARAX [Concomitant]
  7. EDUCTYL (EDUCTYL) [Concomitant]
  8. CETIRIZINE HCL [Concomitant]
  9. AMITRIPTYLINE HCL [Concomitant]
  10. HYDROXYZINE [Concomitant]

REACTIONS (8)
  - HYPOVENTILATION [None]
  - FEELING ABNORMAL [None]
  - PERICARDITIS [None]
  - ASTHENIA [None]
  - HYPOTENSION [None]
  - PLEURAL EFFUSION [None]
  - BRADYCARDIA [None]
  - APNOEA [None]
